FAERS Safety Report 19469068 (Version 6)
Quarter: 2023Q1

REPORT INFORMATION
  Report Type: Report from Study
  Country: JP (occurrence: JP)
  Receive Date: 20210628
  Receipt Date: 20230309
  Transmission Date: 20230418
  Serious: Yes (Death, Hospitalization)
  Sender: FDA-Public Use
  Company Number: JP-ABBVIE-18S-087-2525477-00

PATIENT
  Age: 71 Year
  Sex: Male
  Weight: 55 kg

DRUGS (4)
  1. CARBIDOPA\LEVODOPA [Suspect]
     Active Substance: CARBIDOPA\LEVODOPA
     Indication: Parkinson^s disease
     Dosage: MD: 13 ML;CD: 2 ML/HR ? 16 HRS;?ED: 1 ML/UNIT ? 3
     Route: 050
     Dates: end: 20180131
  2. CARBIDOPA\LEVODOPA [Suspect]
     Active Substance: CARBIDOPA\LEVODOPA
     Dosage: MD: 13 ML, CD: 2 ML/HR X 16 HRS, ED: 1 ML/UNIT X 2 TIMES
     Route: 050
     Dates: start: 20180131
  3. CARBIDOPA\LEVODOPA [Suspect]
     Active Substance: CARBIDOPA\LEVODOPA
     Dosage: 20MG/ML 5MG/ML
     Route: 050
     Dates: start: 20180701
  4. ROTIGOTINE [Concomitant]
     Active Substance: ROTIGOTINE
     Indication: Parkinson^s disease
     Route: 062
     Dates: end: 20200210

REACTIONS (8)
  - Cholecystitis [Fatal]
  - Sepsis [Fatal]
  - Hallucination [Recovering/Resolving]
  - Incorrect route of product administration [Unknown]
  - Wrong technique in device usage process [Unknown]
  - Malaise [Recovered/Resolved]
  - Device breakage [Unknown]
  - On and off phenomenon [Unknown]

NARRATIVE: CASE EVENT DATE: 20181013
